FAERS Safety Report 19792802 (Version 1)
Quarter: 2021Q3

REPORT INFORMATION
  Report Type: Spontaneous
  Country: CA (occurrence: CA)
  Receive Date: 20210906
  Receipt Date: 20210906
  Transmission Date: 20211014
  Serious: Yes (Other)
  Sender: FDA-Public Use
  Company Number: CA-CELLTRION INC.-2021CA012187

PATIENT

DRUGS (2)
  1. INFLECTRA [Suspect]
     Active Substance: INFLIXIMAB-DYYB
     Dosage: 900 MG Q 8 WEEKS
     Route: 042
     Dates: start: 20210624
  2. INFLECTRA [Suspect]
     Active Substance: INFLIXIMAB-DYYB
     Indication: CROHN^S DISEASE
     Dosage: 900 MG Q 8 WEEKS
     Route: 042
     Dates: start: 20201201

REACTIONS (5)
  - Product use issue [Unknown]
  - Abdominal pain [Unknown]
  - Condition aggravated [Unknown]
  - Off label use [Unknown]
  - Frequent bowel movements [Unknown]
